FAERS Safety Report 12631395 (Version 2)
Quarter: 2016Q3

REPORT INFORMATION
  Report Type: Spontaneous
  Country: US (occurrence: US)
  Receive Date: 20160808
  Receipt Date: 20160808
  Transmission Date: 20161109
  Serious: No
  Sender: FDA-Public Use
  Company Number: US-BEH-2015053710

PATIENT
  Sex: Female
  Weight: 76 kg

DRUGS (30)
  1. DOMPERIDONE [Concomitant]
     Active Substance: DOMPERIDONE
  2. DIPHENHYDRAMINE. [Concomitant]
     Active Substance: DIPHENHYDRAMINE
     Indication: ANAPHYLACTIC REACTION
  3. DIFLUCAN [Concomitant]
     Active Substance: FLUCONAZOLE
  4. SINGULAIR [Concomitant]
     Active Substance: MONTELUKAST SODIUM
  5. VITAMIN D3 [Concomitant]
     Active Substance: CHOLECALCIFEROL
  6. EPIPEN [Concomitant]
     Active Substance: EPINEPHRINE
     Indication: ANAPHYLACTIC REACTION
  7. ROBITUSSIN (GUAIFENESIN) [Concomitant]
     Active Substance: GUAIFENESIN
  8. ATROVENT [Concomitant]
     Active Substance: IPRATROPIUM BROMIDE
  9. MULTIVITAMIN [Concomitant]
     Active Substance: VITAMINS
  10. AMLODIPINE [Concomitant]
     Active Substance: AMLODIPINE BESYLATE
  11. PULMICORT TURBUHALER [Concomitant]
     Active Substance: BUDESONIDE
  12. TYLENOL [Concomitant]
     Active Substance: ACETAMINOPHEN
  13. ESTRACE [Concomitant]
     Active Substance: ESTRADIOL
  14. GLUCOSAMINE [Concomitant]
     Active Substance: GLUCOSAMINE
  15. HIZENTRA [Suspect]
     Active Substance: HUMAN IMMUNOGLOBULIN G
     Indication: IMMUNODEFICIENCY COMMON VARIABLE
     Route: 058
  16. BENAZEPRIL [Concomitant]
     Active Substance: BENAZEPRIL HYDROCHLORIDE
  17. ARMOUR THYROID [Concomitant]
     Active Substance: THYROID, PORCINE
  18. XOPENEX [Concomitant]
     Active Substance: LEVALBUTEROL HYDROCHLORIDE
  19. FUROSEMIDE. [Concomitant]
     Active Substance: FUROSEMIDE
  20. IBUPROFEN. [Concomitant]
     Active Substance: IBUPROFEN
  21. NYSTATIN. [Concomitant]
     Active Substance: NYSTATIN
  22. NASONEX [Concomitant]
     Active Substance: MOMETASONE FUROATE
  23. CLONAZEPAM. [Concomitant]
     Active Substance: CLONAZEPAM
  24. NEXIUM [Concomitant]
     Active Substance: ESOMEPRAZOLE MAGNESIUM
  25. LEXAPRO [Concomitant]
     Active Substance: ESCITALOPRAM OXALATE
  26. ACIDOPHILUS [Concomitant]
     Active Substance: LACTOBACILLUS ACIDOPHILUS
  27. SUDAFED [Concomitant]
     Active Substance: PSEUDOEPHEDRINE HYDROCHLORIDE
  28. ALBUTEROL. [Concomitant]
     Active Substance: ALBUTEROL
  29. VITAMIN C [Concomitant]
     Active Substance: ASCORBIC ACID
  30. DYMISTA [Concomitant]
     Active Substance: AZELASTINE HYDROCHLORIDE\FLUTICASONE PROPIONATE

REACTIONS (2)
  - Infusion site erythema [Unknown]
  - Infusion site nodule [Unknown]
